FAERS Safety Report 6156610-7 (Version None)
Quarter: 2009Q2

REPORT INFORMATION
  Report Type: 
  Country: None (occurrence: None)
  Receive Date: 20090416
  Receipt Date: 20090408
  Transmission Date: 20091009
  Serious: Yes (Other)
  Sender: FDA-Public Use
  Company Number: GB-ROCHE-626653

PATIENT
  Sex: Male
  Weight: 130 kg

DRUGS (1)
  1. ORLISTAT [Suspect]
     Indication: OBESITY
     Route: 048
     Dates: start: 20090228

REACTIONS (1)
  - HEART RATE INCREASED [None]
